FAERS Safety Report 25720393 (Version 1)
Quarter: 2025Q3

REPORT INFORMATION
  Report Type: Spontaneous
  Country: US (occurrence: US)
  Receive Date: 20250825
  Receipt Date: 20250825
  Transmission Date: 20251021
  Serious: Yes (Death, Other)
  Sender: JUBILANT
  Company Number: None

PATIENT

DRUGS (8)
  1. PREGABALIN [Suspect]
     Active Substance: PREGABALIN
     Indication: Completed suicide
  2. DICLOFENAC [Suspect]
     Active Substance: DICLOFENAC
     Indication: Completed suicide
  3. PROPRANOLOL HYDROCHLORIDE [Suspect]
     Active Substance: PROPRANOLOL HYDROCHLORIDE
     Indication: Completed suicide
  4. LORAZEPAM [Suspect]
     Active Substance: LORAZEPAM
     Indication: Completed suicide
  5. DULOXETINE [Suspect]
     Active Substance: DULOXETINE
     Indication: Completed suicide
  6. VERAPAMIL [Suspect]
     Active Substance: VERAPAMIL HYDROCHLORIDE
     Indication: Completed suicide
     Dosage: 240 MG, ONCE PER DAY
  7. TADALAFIL [Suspect]
     Active Substance: TADALAFIL
     Indication: Completed suicide
  8. OMEPRAZOLE [Suspect]
     Active Substance: OMEPRAZOLE
     Indication: Completed suicide

REACTIONS (3)
  - Unresponsive to stimuli [Unknown]
  - Intentional overdose [Fatal]
  - Toxicity to various agents [Fatal]
